FAERS Safety Report 21555775 (Version 1)
Quarter: 2022Q4

REPORT INFORMATION
  Report Type: Spontaneous
  Country: US (occurrence: US)
  Receive Date: 20221104
  Receipt Date: 20221104
  Transmission Date: 20230113
  Serious: Yes (Other)
  Sender: FDA-Public Use
  Company Number: DEX 2022-0088(0)

PATIENT
  Age: 18 Year
  Sex: Female

DRUGS (18)
  1. DEXMEDETOMIDINE HYDROCHLORIDE [Suspect]
     Active Substance: DEXMEDETOMIDINE HYDROCHLORIDE
     Indication: Sedative therapy
     Dosage: WEANED OFF ON HD 47
     Route: 065
  2. BENZODIAZEPINE [Suspect]
     Active Substance: BENZODIAZEPINE
     Indication: Sedative therapy
     Dosage: UNKNOWN
     Route: 065
  3. CISATRACURIUM [Concomitant]
     Active Substance: CISATRACURIUM
     Indication: Cough
     Dosage: UNKNOWN
     Route: 065
  4. CISATRACURIUM [Concomitant]
     Active Substance: CISATRACURIUM
     Indication: Metabolic abnormality management
  5. PROPOFOL [Concomitant]
     Active Substance: PROPOFOL
     Indication: Sedative therapy
     Dosage: 30 MICROGRAM/KILOGRAM, 1 MIN (INITIATED ON HD 27)
     Route: 065
  6. PROPOFOL [Concomitant]
     Active Substance: PROPOFOL
     Indication: Cough
     Dosage: 90 MICROGRAM/KILOGRAM, 1 MIN (INITIATED ON HD 30)
     Route: 065
  7. PROPOFOL [Concomitant]
     Active Substance: PROPOFOL
     Dosage: 35-70 MILLIGRAM AS NEEDED (1 MIN)
     Route: 065
  8. ROCURONIUM [Concomitant]
     Active Substance: ROCURONIUM BROMIDE
     Indication: Cough
     Dosage: 1 MG/KG (ON HD 26, 27, 28 AND 30  2 DOSES
     Route: 065
  9. DEXTROMETHORPHAN [Concomitant]
     Active Substance: DEXTROMETHORPHAN
     Indication: Cough
     Dosage: 10 MILLIGRAM, SINGLE (ON HD 30)
     Route: 065
  10. TRAZODONE [Concomitant]
     Active Substance: TRAZODONE HYDROCHLORIDE
     Indication: Staphylococcal bacteraemia
     Dosage: UNK, AT BEDIME
     Route: 065
  11. LINEZOLID [Concomitant]
     Active Substance: LINEZOLID
     Indication: Staphylococcal bacteraemia
     Dosage: UNKNOWN
     Route: 065
  12. LIDOCAINE [Concomitant]
     Active Substance: LIDOCAINE
     Indication: Cough
     Dosage: 1 PERCENT (40 MG), Q6H (STARTED ON HD 31)
     Route: 055
  13. ALBUTEROL SULFATE [Concomitant]
     Active Substance: ALBUTEROL SULFATE
     Indication: Prophylaxis against bronchospasm
     Dosage: 5 MILLIGRAM, Q6H (ON HD 31)
     Route: 065
  14. GABAPENTIN [Concomitant]
     Active Substance: GABAPENTIN
     Indication: Cough
     Dosage: 300 MILLIGRAM, Q8H ON HD 31
     Route: 065
  15. GABAPENTIN [Concomitant]
     Active Substance: GABAPENTIN
     Dosage: 400 MILLIGRAM, Q8H ON HD 39
     Route: 065
  16. GABAPENTIN [Concomitant]
     Active Substance: GABAPENTIN
     Dosage: UP-TITRATED TO 300 MG IN THE MORNING, 300 MG IN THE AFTERNOON, AND 900 MG IN THE EVENING
     Route: 065
  17. GABAPENTIN [Concomitant]
     Active Substance: GABAPENTIN
     Dosage: 400 MG PLUS 400 MG PLUS 600 MG. ON HD 40
     Route: 065
  18. IPRATROPIUM [Concomitant]
     Active Substance: IPRATROPIUM
     Indication: Cough
     Dosage: 500 MILLIGRAM, Q6H, PRN
     Route: 065

REACTIONS (1)
  - Bradyarrhythmia [Unknown]
